FAERS Safety Report 6123037-3 (Version None)
Quarter: 2009Q1

REPORT INFORMATION
  Report Type: 
  Country: None (occurrence: None)
  Receive Date: 20090318
  Receipt Date: 20090309
  Transmission Date: 20090719
  Serious: Yes (Other)
  Sender: FDA-Public Use
  Company Number: IT-AVENTIS-200910869GDDC

PATIENT
  Age: 42 Year
  Sex: Female

DRUGS (2)
  1. APIDRA [Suspect]
     Dosage: FREQUENCY: BEFORE MEALS
     Route: 058
     Dates: start: 20090101
  2. LANTUS [Concomitant]
     Dosage: DOSE: 12 OR 14
     Route: 058

REACTIONS (3)
  - HYPERGLYCAEMIA [None]
  - HYPOGLYCAEMIC UNCONSCIOUSNESS [None]
  - PRODUCT QUALITY ISSUE [None]
